FAERS Safety Report 25739590 (Version 1)
Quarter: 2025Q3

REPORT INFORMATION
  Report Type: Spontaneous
  Country: US (occurrence: US)
  Receive Date: 20250829
  Receipt Date: 20250829
  Transmission Date: 20251021
  Serious: Yes (Disabling)
  Sender: TEVA
  Company Number: US-TEVA-VS-3365107

PATIENT
  Age: 68 Year
  Sex: Female

DRUGS (1)
  1. TERIPARATIDE [Suspect]
     Active Substance: TERIPARATIDE
     Indication: Product used for unknown indication
     Route: 065

REACTIONS (6)
  - Disability [Unknown]
  - Device failure [Unknown]
  - Product use complaint [Unknown]
  - Mobility decreased [Unknown]
  - Device issue [Unknown]
  - Drug dose omission by device [Unknown]
